FAERS Safety Report 24126742 (Version 3)
Quarter: 2024Q3

REPORT INFORMATION
  Report Type: Spontaneous
  Country: US (occurrence: US)
  Receive Date: 20240723
  Receipt Date: 20240930
  Transmission Date: 20241016
  Serious: No
  Sender: BLUEPRINT MEDICINES
  Company Number: US-Blueprint Medicines Corporation-4230

PATIENT
  Age: 66 Year
  Sex: Female

DRUGS (3)
  1. AYVAKIT [Suspect]
     Active Substance: AVAPRITINIB
     Indication: Systemic mastocytosis
     Route: 065
     Dates: start: 20240617
  2. AYVAKIT [Suspect]
     Active Substance: AVAPRITINIB
     Route: 065
     Dates: start: 20240617
  3. AYVAKIT [Suspect]
     Active Substance: AVAPRITINIB
     Route: 065
     Dates: start: 20240617

REACTIONS (9)
  - Skin laceration [Unknown]
  - Contusion [Recovering/Resolving]
  - Haematoma [Recovering/Resolving]
  - Erythema [Recovering/Resolving]
  - Burning sensation [Unknown]
  - Peripheral swelling [Recovering/Resolving]
  - Rash erythematous [Unknown]
  - Limb injury [Unknown]
  - Skin papilloma [Unknown]

NARRATIVE: CASE EVENT DATE: 20240822
